FAERS Safety Report 15765696 (Version 1)
Quarter: 2018Q4

REPORT INFORMATION
  Report Type: Spontaneous
  Country: US (occurrence: US)
  Receive Date: 20181227
  Receipt Date: 20181227
  Transmission Date: 20190205
  Serious: Yes (Life-Threatening)
  Sender: FDA-Public Use
  Company Number: None

PATIENT
  Age: 50 Year
  Sex: Female
  Weight: 64.8 kg

DRUGS (5)
  1. ULTRAVIST [Suspect]
     Active Substance: IOPROMIDE
     Indication: COMPUTERISED TOMOGRAM
     Dosage: ?          QUANTITY:200 ML;?
     Route: 042
     Dates: start: 20161025, end: 20161025
  2. TOPROL XL [Concomitant]
     Active Substance: METOPROLOL SUCCINATE
  3. CALCIUM CITRATE [Concomitant]
     Active Substance: CALCIUM CITRATE
  4. VITAMIN D [Concomitant]
     Active Substance: CHOLECALCIFEROL
  5. MULTIVITAMIN [Concomitant]
     Active Substance: VITAMINS

REACTIONS (2)
  - Contrast media reaction [None]
  - Anaphylactic reaction [None]

NARRATIVE: CASE EVENT DATE: 20161025
